FAERS Safety Report 10153034 (Version 3)
Quarter: 2014Q2

REPORT INFORMATION
  Report Type: Spontaneous
  Country: US (occurrence: US)
  Receive Date: 20140505
  Receipt Date: 20140603
  Transmission Date: 20141212
  Serious: Yes (Other)
  Sender: FDA-Public Use
  Company Number: PHEH2014US008466

PATIENT
  Sex: Male

DRUGS (9)
  1. DIOVAN [Suspect]
     Dosage: 80 MG, UNK
     Dates: start: 2009
  2. DIOVAN [Suspect]
     Dosage: 40 MG, UNK
  3. ZOLPIDEM [Concomitant]
     Indication: SLEEP DISORDER
     Dosage: 10 MG, UNK
  4. BABY ASPIRIN [Concomitant]
     Dosage: UNK UKN, UNK
  5. METOPROLOL [Concomitant]
     Dosage: UNK UKN, UNK
  6. TRAMADOL [Concomitant]
     Dosage: UNK UKN, UNK
  7. SIMVASTATIN [Concomitant]
     Dosage: 20 MG, UNK
  8. LANSOPRAZOLE [Concomitant]
     Dosage: 30 MG, UNK
  9. OXYCODONE [Concomitant]
     Dosage: UNK UKN, UNK

REACTIONS (1)
  - Myocardial infarction [Unknown]
